FAERS Safety Report 7491076-6 (Version None)
Quarter: 2011Q2

REPORT INFORMATION
  Report Type: 
  Country: None (occurrence: None)
  Receive Date: 20110519
  Receipt Date: 20110509
  Transmission Date: 20111010
  Serious: Yes (Hospitalization)
  Sender: FDA-Public Use
  Company Number: DE-ROCHE-775060

PATIENT
  Sex: Male
  Weight: 71 kg

DRUGS (5)
  1. CITALOPRAM [Concomitant]
     Route: 048
     Dates: start: 20100614
  2. RAMIPRIL [Concomitant]
     Route: 048
  3. PEGINTERFERON ALFA-2A [Suspect]
     Route: 058
     Dates: start: 20100629
  4. METOPROLOL SUCCINATE [Concomitant]
     Route: 048
  5. RIBAVIRIN [Suspect]
     Route: 048
     Dates: start: 20100629

REACTIONS (1)
  - CEREBROVASCULAR ACCIDENT [None]
